FAERS Safety Report 9051151 (Version 1)
Quarter: 2013Q1

REPORT INFORMATION
  Report Type: Spontaneous
  Country: US (occurrence: US)
  Receive Date: 20130206
  Receipt Date: 20130206
  Transmission Date: 20140127
  Serious: No
  Sender: FDA-Public Use
  Company Number: US-PFIZER INC-2013043627

PATIENT
  Age: 80 Year
  Sex: Male
  Weight: 97.05 kg

DRUGS (9)
  1. TOVIAZ [Suspect]
     Indication: POLLAKIURIA
     Dosage: 8 MG, 1X/DAY
     Route: 048
     Dates: start: 20130124
  2. TOVIAZ [Suspect]
     Indication: MICTURITION URGENCY
  3. HYDROCHLOROTHIAZIDE [Concomitant]
     Dosage: UNK
  4. LISINOPRIL [Concomitant]
     Dosage: UNK
  5. ASPIRIN [Concomitant]
     Dosage: UNK
  6. AMLODIPINE [Concomitant]
     Dosage: UNK
  7. VITAMIN D [Concomitant]
     Dosage: UNK
  8. METOPROLOL [Concomitant]
     Dosage: UNK
  9. CARISOPRODOL [Concomitant]
     Dosage: UNK

REACTIONS (2)
  - Expired drug administered [Unknown]
  - Drug ineffective [Unknown]
